FAERS Safety Report 8323174-9 (Version None)
Quarter: 2012Q2

REPORT INFORMATION
  Report Type: 
  Country: None (occurrence: None)
  Receive Date: 20120430
  Receipt Date: 20120418
  Transmission Date: 20120825
  Serious: Yes (Death)
  Sender: FDA-Public Use
  Company Number: US-MYLANLABS-2009S1013125

PATIENT
  Age: 56 Year
  Sex: Female
  Weight: 78.02 kg

DRUGS (10)
  1. FENTANYL-100 [Suspect]
     Indication: PAIN
     Dosage: CHANGED Q3D
     Route: 062
  2. PAROXETINE HYDROCHLORIDE [Suspect]
     Route: 048
  3. CLONAZEPAM [Concomitant]
  4. SEROQUEL [Concomitant]
     Route: 048
  5. AMITRIPTYLINE HCL [Concomitant]
     Dosage: 50MG TO 100MG HS
     Route: 048
  6. FOSAMAX [Concomitant]
     Dates: start: 20070716
  7. COZAAR [Concomitant]
     Route: 048
  8. SYNTHROID [Concomitant]
     Route: 048
  9. EPOGEN [Concomitant]
     Route: 058
     Dates: start: 20070716
  10. TRAMADOL HCL [Concomitant]

REACTIONS (1)
  - TOXICITY TO VARIOUS AGENTS [None]
